FAERS Safety Report 12820080 (Version 1)
Quarter: 2016Q4

REPORT INFORMATION
  Report Type: Report from Study
  Country: US (occurrence: US)
  Receive Date: 20161006
  Receipt Date: 20161006
  Transmission Date: 20170207
  Serious: No
  Sender: FDA-Public Use
  Company Number: US-AMGEN-USASL2015118566

PATIENT
  Age: 55 Year
  Sex: Female
  Weight: 68.3 kg

DRUGS (4)
  1. PROLIA [Suspect]
     Active Substance: DENOSUMAB
     Dosage: 60 UNK, UNK
     Route: 058
     Dates: start: 20151002
  2. PROLIA [Suspect]
     Active Substance: DENOSUMAB
     Indication: OSTEOPOROSIS
     Dosage: 60 UNK, Q6MO
     Route: 058
     Dates: start: 20140212, end: 20151002
  3. PROLIA [Suspect]
     Active Substance: DENOSUMAB
     Dosage: 60 MG, UNK
     Route: 058
     Dates: start: 20140812
  4. PROLIA [Suspect]
     Active Substance: DENOSUMAB
     Dosage: 60 UNK, UNK
     Route: 058
     Dates: start: 20150220

REACTIONS (11)
  - Pain [Unknown]
  - Pain in extremity [Unknown]
  - Insomnia [Unknown]
  - Bone disorder [Unknown]
  - Back pain [Unknown]
  - Anxiety [Unknown]
  - Myalgia [Recovering/Resolving]
  - Groin pain [Recovering/Resolving]
  - Muscular weakness [Unknown]
  - Gait disturbance [Unknown]
  - Drug effect incomplete [Unknown]
